FAERS Safety Report 14052686 (Version 2)
Quarter: 2017Q4

REPORT INFORMATION
  Report Type: Spontaneous
  Country: US (occurrence: US)
  Receive Date: 20171005
  Receipt Date: 20171124
  Transmission Date: 20180321
  Serious: No
  Sender: FDA-Public Use
  Company Number: US-JNJFOC-20170901193

PATIENT
  Age: 48 Year
  Sex: Female
  Weight: 70.76 kg

DRUGS (3)
  1. IMODIUM MULTI-SYMPTOM RELIEF [Suspect]
     Active Substance: DIMETHICONE\LOPERAMIDE HYDROCHLORIDE
     Indication: DIARRHOEA
     Dosage: 1 TO 2 CAPLETS; AT MOST ONCE PER WEEK; USUALLY ABOUT ONCE EVERY 1 OR 2 MONTHS
     Route: 048
  2. IMODIUM MULTI-SYMPTOM RELIEF [Suspect]
     Active Substance: DIMETHICONE\LOPERAMIDE HYDROCHLORIDE
     Indication: FLATULENCE
     Dosage: 1 TO 2 CAPLETS; AT MOST ONCE PER WEEK; USUALLY ABOUT ONCE EVERY 1 OR 2 MONTHS
     Route: 048
  3. EXCEDRIN [Concomitant]
     Active Substance: ACETAMINOPHEN\ASPIRIN\CAFFEINE
     Route: 065

REACTIONS (4)
  - Product use complaint [Recovered/Resolved]
  - Retching [Recovered/Resolved]
  - Product formulation issue [Unknown]
  - Foreign body in respiratory tract [Recovered/Resolved]
